FAERS Safety Report 24911799 (Version 1)
Quarter: 2025Q1

REPORT INFORMATION
  Report Type: Spontaneous
  Country: US (occurrence: US)
  Receive Date: 20250131
  Receipt Date: 20250131
  Transmission Date: 20250408
  Serious: No
  Sender: PFIZER
  Company Number: US-PFIZER INC-202500020257

PATIENT

DRUGS (1)
  1. PAXLOVID [Suspect]
     Active Substance: NIRMATRELVIR\RITONAVIR
     Indication: COVID-19 treatment
     Dates: start: 202501

REACTIONS (3)
  - Glossodynia [Not Recovered/Not Resolved]
  - Eating disorder [Not Recovered/Not Resolved]
  - Glossitis [Unknown]

NARRATIVE: CASE EVENT DATE: 20250101
